FAERS Safety Report 8596027-9 (Version None)
Quarter: 2012Q3

REPORT INFORMATION
  Report Type: 
  Country: None (occurrence: None)
  Receive Date: 20120815
  Receipt Date: 20120807
  Transmission Date: 20120928
  Serious: Yes (Other)
  Sender: FDA-Public Use
  Company Number: US-BAYER-2012-082466

PATIENT
  Sex: Male

DRUGS (1)
  1. ALEVE (CAPLET) [Suspect]
     Dosage: USED ONLY ONE TIME
     Route: 048
     Dates: start: 20120806, end: 20120806

REACTIONS (3)
  - FATIGUE [None]
  - MENTAL IMPAIRMENT [None]
  - DYSPEPSIA [None]
